FAERS Safety Report 10146830 (Version 1)
Quarter: 2014Q2

REPORT INFORMATION
  Report Type: Spontaneous
  Country: US (occurrence: US)
  Receive Date: 20140501
  Receipt Date: 20140501
  Transmission Date: 20141212
  Serious: Yes (Congenital Anomaly, Other)
  Sender: FDA-Public Use
  Company Number: US-JNJFOC-20140416344

PATIENT
  Sex: Female

DRUGS (3)
  1. TOPAMAX [Suspect]
     Indication: HEADACHE
     Dosage: MOTHER DOSING
     Route: 064
  2. TOPAMAX [Suspect]
     Indication: BENIGN INTRACRANIAL HYPERTENSION
     Dosage: MOTHER DOSING
     Route: 064
  3. AMITRIPTYLINE [Suspect]
     Indication: PRODUCT USED FOR UNKNOWN INDICATION
     Dosage: MOTHER DOSING
     Route: 064

REACTIONS (5)
  - Anomalous pulmonary venous connection [Recovered/Resolved]
  - Cardiac failure congestive [Recovered/Resolved]
  - Atrial septal defect [Recovered/Resolved]
  - Patent ductus arteriosus [Unknown]
  - Foetal exposure during pregnancy [Unknown]
